FAERS Safety Report 11985207 (Version 1)
Quarter: 2016Q1

REPORT INFORMATION
  Report Type: Spontaneous
  Country: US (occurrence: US)
  Receive Date: 20160201
  Receipt Date: 20160201
  Transmission Date: 20160526
  Serious: Yes (Hospitalization, Other)
  Sender: FDA-Public Use
  Company Number: US-B.I. PHARMACEUTICALS,INC./RIDGEFIELD-2016-BI-04923BP

PATIENT
  Age: 57 Year
  Sex: Male

DRUGS (5)
  1. MIRAPEX [Suspect]
     Active Substance: PRAMIPEXOLE DIHYDROCHLORIDE
     Indication: PRODUCT USED FOR UNKNOWN INDICATION
     Route: 065
  2. ANDROGEL [Suspect]
     Active Substance: TESTOSTERONE
     Indication: HORMONE REPLACEMENT THERAPY
     Route: 061
     Dates: start: 200810, end: 201001
  3. ZOLOFT [Concomitant]
     Active Substance: SERTRALINE HYDROCHLORIDE
     Indication: PRODUCT USED FOR UNKNOWN INDICATION
     Dosage: 100 MG
     Route: 065
     Dates: start: 2001
  4. THEOPHYLLINE [Suspect]
     Active Substance: THEOPHYLLINE ANHYDROUS
     Indication: PRODUCT USED FOR UNKNOWN INDICATION
     Route: 065
  5. LIPITOR [Suspect]
     Active Substance: ATORVASTATIN CALCIUM
     Indication: PRODUCT USED FOR UNKNOWN INDICATION
     Route: 065

REACTIONS (29)
  - Chronic obstructive pulmonary disease [Recovered/Resolved]
  - Pain in extremity [Unknown]
  - Headache [Unknown]
  - Hyperhidrosis [Unknown]
  - Muscle spasms [Unknown]
  - Chronic obstructive pulmonary disease [Recovered/Resolved]
  - Alpha-1 anti-trypsin deficiency [Unknown]
  - Organising pneumonia [Unknown]
  - Diabetes mellitus [Unknown]
  - Pulmonary fibrosis [Unknown]
  - Peripheral swelling [Unknown]
  - International normalised ratio increased [Unknown]
  - Heart rate increased [Unknown]
  - Nausea [Unknown]
  - Chills [Unknown]
  - Pulmonary embolism [Unknown]
  - Folliculitis [Unknown]
  - Neuropathy peripheral [Unknown]
  - Thrombosis [Unknown]
  - Sinusitis [Unknown]
  - Anxiety disorder [Unknown]
  - Bronchitis [Unknown]
  - Fatigue [Unknown]
  - Acute sinusitis [Unknown]
  - Tendonitis [Unknown]
  - Sinobronchitis [Unknown]
  - Chronic obstructive pulmonary disease [Recovered/Resolved]
  - Abdominal pain upper [Unknown]
  - Pyrexia [Unknown]

NARRATIVE: CASE EVENT DATE: 2010
